FAERS Safety Report 11423189 (Version 2)
Quarter: 2015Q3

REPORT INFORMATION
  Report Type: Spontaneous
  Country: CH (occurrence: CH)
  Receive Date: 20150827
  Receipt Date: 20150924
  Transmission Date: 20151125
  Serious: Yes (Death)
  Sender: FDA-Public Use
  Company Number: CH-PFIZER INC-2015247379

PATIENT
  Age: 71 Year
  Sex: Female
  Weight: 70 kg

DRUGS (5)
  1. TORASEMIDE [Concomitant]
     Active Substance: TORSEMIDE
     Indication: OEDEMA
     Dosage: 10 MG, 1X/DAY (1-0-0)
     Route: 048
     Dates: start: 201410, end: 201502
  2. XARELTO [Concomitant]
     Active Substance: RIVAROXABAN
     Indication: HYPERCOAGULATION
     Dosage: 20 MG, 1X/DAY (1-0-0)
     Route: 048
     Dates: start: 201310, end: 201502
  3. CRIZOTINIB [Suspect]
     Active Substance: CRIZOTINIB
     Indication: LUNG NEOPLASM MALIGNANT
     Dosage: 250 MG, 2X/DAY
     Route: 048
     Dates: start: 201407
  4. CRIZOTINIB [Suspect]
     Active Substance: CRIZOTINIB
     Dosage: 200 MG, 2X/DAY
     Dates: end: 201502
  5. URSOCHOL [Concomitant]
     Indication: CHOLANGITIS INFECTIVE
     Dosage: 300 MG, 2X/DAY (1-0-1)
     Route: 048
     Dates: start: 201410, end: 201502

REACTIONS (3)
  - Disease progression [Fatal]
  - Product use issue [Unknown]
  - Lung neoplasm malignant [Fatal]

NARRATIVE: CASE EVENT DATE: 201407
